FAERS Safety Report 11243081 (Version 2)
Quarter: 2015Q3

REPORT INFORMATION
  Report Type: Spontaneous
  Country: BR (occurrence: BR)
  Receive Date: 20150707
  Receipt Date: 20150903
  Transmission Date: 20151125
  Serious: Yes (Other)
  Sender: FDA-Public Use
  Company Number: BR-MUNDIPHARMA DS AND PHARMACOVIGILANCE-GBR-2015-0029369

PATIENT
  Age: 62 Year
  Sex: Female

DRUGS (3)
  1. PARACETAMOL [Concomitant]
     Active Substance: ACETAMINOPHEN
     Indication: FIBROMYALGIA
     Dosage: 1-2 TABLETS DAILY
     Route: 048
  2. OXYCONTIN [Suspect]
     Active Substance: OXYCODONE HYDROCHLORIDE
     Indication: PAIN
     Dosage: 10 MG, NOCTE
     Route: 048
     Dates: start: 20150408, end: 201504
  3. NIMESULIDE BETA-CYCLODEXTRINE [Concomitant]
     Indication: UPPER LIMB FRACTURE
     Dosage: 400 MG, Q12H
     Route: 048
     Dates: start: 20150408

REACTIONS (3)
  - Cardiomegaly [Not Recovered/Not Resolved]
  - Dyspnoea [Recovered/Resolved]
  - Swelling [Recovered/Resolved]

NARRATIVE: CASE EVENT DATE: 20150409
